FAERS Safety Report 5624780-2 (Version None)
Quarter: 2008Q1

REPORT INFORMATION
  Report Type: 
  Country: None (occurrence: None)
  Receive Date: 20080208
  Receipt Date: 20080125
  Transmission Date: 20080703
  Serious: Yes (Death)
  Sender: FDA-Public Use
  Company Number: US022400

PATIENT
  Age: 46 Year
  Sex: Male

DRUGS (6)
  1. TIAGABINE HCL [Suspect]
     Dosage: ORAL
     Route: 048
  2. METHADONE HCL [Suspect]
  3. BENZODIAZEPINE [Suspect]
  4. RISPERIDONE [Suspect]
  5. TOPIRAMATE [Suspect]
  6. MARIJUANA [Suspect]

REACTIONS (1)
  - COMPLETED SUICIDE [None]
